FAERS Safety Report 4790193-9 (Version None)
Quarter: 2005Q4

REPORT INFORMATION
  Report Type: 
  Country: None (occurrence: None)
  Receive Date: 20051005
  Receipt Date: 20051005
  Transmission Date: 20060501
  Serious: Yes (Hospitalization)
  Sender: FDA-Public Use
  Company Number: None

PATIENT
  Age: 48 Year
  Sex: Female

DRUGS (6)
  1. HEPARIN [Suspect]
     Dosage: 1500 MG IV 1HR
     Route: 042
     Dates: start: 20050830, end: 20050907
  2. ACETAMINOPHEN [Concomitant]
  3. FOLIC ACID [Concomitant]
  4. AMPICILLIN SODIUM/SULBACTAM SODIUM [Concomitant]
  5. HYDROMORPHONE [Concomitant]
  6. DIPHENHYDRAMINE HCL [Concomitant]

REACTIONS (1)
  - HEPARIN-INDUCED THROMBOCYTOPENIA [None]
